FAERS Safety Report 5494708-7 (Version None)
Quarter: 2007Q4

REPORT INFORMATION
  Report Type: 
  Country: None (occurrence: None)
  Receive Date: 20071015
  Receipt Date: 20070829
  Transmission Date: 20080405
  Serious: No
  Sender: FDA-Public Use
  Company Number: 2007SP003034

PATIENT
  Age: 64 Year
  Sex: Male
  Weight: 63.5036 kg

DRUGS (5)
  1. LUNESTA [Suspect]
     Indication: INSOMNIA
     Dosage: 2 MG; HS; ORAL; 1 MG;HS; ORAL; 1.5 MG; HS; ORAL
     Route: 048
     Dates: start: 20070801, end: 20070801
  2. LUNESTA [Suspect]
     Indication: INSOMNIA
     Dosage: 2 MG; HS; ORAL; 1 MG;HS; ORAL; 1.5 MG; HS; ORAL
     Route: 048
     Dates: start: 20070801, end: 20070801
  3. LUNESTA [Suspect]
     Indication: INSOMNIA
     Dosage: 2 MG; HS; ORAL; 1 MG;HS; ORAL; 1.5 MG; HS; ORAL
     Route: 048
     Dates: start: 20070818, end: 20070827
  4. AMBIEN [Concomitant]
  5. VITAMINS [Concomitant]

REACTIONS (6)
  - ANXIETY [None]
  - DRUG WITHDRAWAL SYNDROME [None]
  - HEADACHE [None]
  - INSOMNIA [None]
  - NERVOUSNESS [None]
  - SOMNOLENCE [None]
